FAERS Safety Report 6179704-9 (Version None)
Quarter: 2009Q2

REPORT INFORMATION
  Report Type: 
  Country: None (occurrence: None)
  Receive Date: 20090505
  Receipt Date: 20090420
  Transmission Date: 20091009
  Serious: Yes (Other)
  Sender: FDA-Public Use
  Company Number: IT-GENENTECH-282093

PATIENT
  Sex: Female
  Weight: 69 kg

DRUGS (1)
  1. RITUXIMAB [Suspect]
     Indication: NON-HODGKIN'S LYMPHOMA
     Dosage: 622.5 MG, UNK
     Route: 042
     Dates: start: 20060614, end: 20070730

REACTIONS (1)
  - SARCOIDOSIS [None]
